FAERS Safety Report 6564008-2 (Version None)
Quarter: 2010Q1

REPORT INFORMATION
  Report Type: 
  Country: None (occurrence: None)
  Receive Date: 20100131
  Receipt Date: 20100122
  Transmission Date: 20100710
  Serious: Yes (Other)
  Sender: FDA-Public Use
  Company Number: US-JNJFOC-20100110279

PATIENT
  Age: 41 Year
  Sex: Female

DRUGS (2)
  1. TOPAMAX [Suspect]
     Indication: MIGRAINE PROPHYLAXIS
     Route: 048
  2. IMITREX [Concomitant]
     Indication: MIGRAINE
     Route: 065

REACTIONS (3)
  - CARBON DIOXIDE DECREASED [None]
  - MENORRHAGIA [None]
  - UTERINE LEIOMYOMA [None]
